FAERS Safety Report 7177307-0 (Version None)
Quarter: 2010Q4

REPORT INFORMATION
  Report Type: 
  Country: None (occurrence: None)
  Receive Date: 20101220
  Receipt Date: 20101207
  Transmission Date: 20110411
  Serious: Yes (Other)
  Sender: FDA-Public Use
  Company Number: US-ELI_LILLY_AND_COMPANY-US201012002019

PATIENT
  Sex: Female

DRUGS (12)
  1. FORTEO [Suspect]
     Indication: OSTEOPOROSIS
     Dosage: 20 UG, DAILY (1/D)
     Dates: start: 20100518, end: 20101103
  2. FORTEO [Suspect]
     Dosage: 20 UG, DAILY (1/D)
     Dates: start: 20101117
  3. CARDIZEM LA [Concomitant]
  4. ASPIRIN [Concomitant]
     Dosage: 81 MG, UNK
  5. PULMICORT [Concomitant]
     Dosage: UNK, EACH MORNING
     Route: 055
  6. ZOLOFT [Concomitant]
     Dosage: 50 MG, UNK
  7. GLUCOSAMINE [Concomitant]
  8. MULTI-VITAMIN [Concomitant]
  9. C-VITAMIN [Concomitant]
  10. E VITAMIN [Concomitant]
  11. CALTRATE + VITAMIN D [Concomitant]
     Dosage: UNK, 2/D
  12. VITAMIN D [Concomitant]
     Dosage: 2000 IU, 2/D

REACTIONS (5)
  - DYSPNOEA [None]
  - FATIGUE [None]
  - INCONTINENCE [None]
  - LUNG NEOPLASM [None]
  - VITAMIN D DECREASED [None]
